FAERS Safety Report 11048769 (Version 1)
Quarter: 2015Q2

REPORT INFORMATION
  Report Type: Report from Study
  Country: FR (occurrence: FR)
  Receive Date: 20150420
  Receipt Date: 20150420
  Transmission Date: 20150821
  Serious: Yes (Hospitalization)
  Sender: FDA-Public Use
  Company Number: FR-009507513-1504FRA016612

PATIENT
  Age: 46 Year
  Sex: Female
  Weight: 94 kg

DRUGS (3)
  1. RALTEGRAVIR POTASSIUM [Suspect]
     Active Substance: RALTEGRAVIR POTASSIUM
     Indication: HIV INFECTION
     Dosage: 400 MG, BID (ALSO REPORTED AS TOTAL DAILY DOSE: 400 MG, BID)
     Route: 048
     Dates: start: 20141213
  2. TENOFOVIR [Suspect]
     Active Substance: TENOFOVIR
     Indication: HIV INFECTION
     Dosage: 245 MG, QD
     Route: 048
     Dates: start: 20140615
  3. EMTRICITABINE [Suspect]
     Active Substance: EMTRICITABINE
     Dosage: 200 MG, QD
     Route: 048
     Dates: start: 20140615

REACTIONS (1)
  - Postoperative abscess [Recovering/Resolving]

NARRATIVE: CASE EVENT DATE: 20150301
